FAERS Safety Report 17851575 (Version 2)
Quarter: 2020Q2

REPORT INFORMATION
  Report Type: Report from Study
  Country: US (occurrence: US)
  Receive Date: 20200602
  Receipt Date: 20200623
  Transmission Date: 20200714
  Serious: Yes (Hospitalization, Other)
  Sender: FDA-Public Use
  Company Number: US-009507513-2005USA009216

PATIENT
  Age: 33 Year
  Sex: Male
  Weight: 121.8 kg

DRUGS (3)
  1. CARBOPLATIN. [Suspect]
     Active Substance: CARBOPLATIN
     Indication: OESOPHAGEAL CARCINOMA
     Dosage: STRENGTH AND DOSE: 300 MILLIGRAM, QW (Q 7 DAYS)
     Route: 042
     Dates: start: 20200326, end: 20200423
  2. PACLITAXEL. [Suspect]
     Active Substance: PACLITAXEL
     Indication: OESOPHAGEAL CARCINOMA
     Dosage: UNK
     Route: 042
     Dates: start: 20200326, end: 20200423
  3. PEMBROLIZUMAB. [Suspect]
     Active Substance: PEMBROLIZUMAB
     Indication: OESOPHAGEAL CARCINOMA
     Dosage: DOSE AND STRENGTH:200 MILLIGRAM, Q3W
     Route: 042
     Dates: start: 20200313, end: 20200423

REACTIONS (5)
  - Colitis [Unknown]
  - Gastrointestinal haemorrhage [Unknown]
  - Pyrexia [Unknown]
  - Pulmonary embolism [Unknown]
  - Arthritis [Unknown]

NARRATIVE: CASE EVENT DATE: 20200522
